FAERS Safety Report 5264537-8 (Version None)
Quarter: 2007Q1

REPORT INFORMATION
  Report Type: 
  Country: None (occurrence: None)
  Receive Date: 20061213
  Receipt Date: 20050405
  Transmission Date: 20070707
  Serious: Yes (Other)
  Sender: FDA-Public Use
  Company Number: 2005UW05247

PATIENT
  Age: 86 Year
  Sex: Male
  Weight: 67.131 kg

DRUGS (4)
  1. IRESSA [Suspect]
     Indication: NON-SMALL CELL LUNG CANCER
     Dates: start: 20040901
  2. FORADIL [Concomitant]
  3. AEROBID [Concomitant]
  4. OMEPRAZOLE [Concomitant]

REACTIONS (5)
  - ALOPECIA [None]
  - HAIR COLOUR CHANGES [None]
  - HAIR TEXTURE ABNORMAL [None]
  - RASH [None]
  - SKIN WRINKLING [None]
